FAERS Safety Report 18041304 (Version 1)
Quarter: 2020Q3

REPORT INFORMATION
  Report Type: Report from Study
  Country: IN (occurrence: IN)
  Receive Date: 20200719
  Receipt Date: 20200719
  Transmission Date: 20201103
  Serious: Yes (Other)
  Sender: FDA-Public Use
  Company Number: NVSC2020IN068937

PATIENT
  Age: 68 Year
  Sex: Male
  Weight: 68 kg

DRUGS (3)
  1. NOVORAPID [Concomitant]
     Active Substance: INSULIN ASPART
     Indication: DIABETES MELLITUS
     Dosage: UNK UNK, TID (1?1?1, PREMEAL)
     Route: 058
  2. LANTUS [Concomitant]
     Active Substance: INSULIN GLARGINE
     Indication: DIABETES MELLITUS
     Dosage: UNK UNK, QD (0?0?1)
     Route: 058
  3. GALVUS MET [Suspect]
     Active Substance: METFORMIN HYDROCHLORIDE\VILDAGLIPTIN
     Indication: DIABETES MELLITUS
     Dosage: 1 DF, BID (0?1?1, PREMEAL)
     Route: 048
     Dates: start: 20200218

REACTIONS (12)
  - Hyperglycaemia [Not Recovered/Not Resolved]
  - Overweight [Unknown]
  - Hypertension [Unknown]
  - Neuropathy peripheral [Not Recovered/Not Resolved]
  - Paraesthesia [Unknown]
  - Hypoglycaemia [Unknown]
  - Hyperhidrosis [Unknown]
  - Inappropriate schedule of product administration [Not Recovered/Not Resolved]
  - Burning sensation [Unknown]
  - Feeling abnormal [Unknown]
  - Hunger [Unknown]
  - Glycosylated haemoglobin increased [Unknown]

NARRATIVE: CASE EVENT DATE: 20200227
